FAERS Safety Report 16156882 (Version 3)
Quarter: 2024Q1

REPORT INFORMATION
  Report Type: Other
  Country: ES (occurrence: ES)
  Receive Date: 20190404
  Receipt Date: 20240328
  Transmission Date: 20240410
  Serious: Yes (Hospitalization)
  Sender: FDA-Public Use
  Company Number: ES-MACLEODS PHARMACEUTICALS US LTD-MAC2019020730

PATIENT

DRUGS (20)
  1. CANDESARTAN [Suspect]
     Active Substance: CANDESARTAN
     Indication: Migraine
     Dosage: UNK
     Route: 065
  2. ESCITALOPRAM OXALATE [Suspect]
     Active Substance: ESCITALOPRAM OXALATE
     Indication: Migraine
     Dosage: UNK
     Route: 048
  3. AMITRIPTYLINE [Suspect]
     Active Substance: AMITRIPTYLINE
     Indication: Migraine
     Dosage: UNK
     Route: 048
  4. PREGABALIN [Suspect]
     Active Substance: PREGABALIN
     Indication: Migraine
     Dosage: UNK
     Route: 065
  5. PREGABALIN [Suspect]
     Active Substance: PREGABALIN
     Indication: Product used for unknown indication
     Dosage: UNK
     Route: 065
  6. ZONISAMIDE [Suspect]
     Active Substance: ZONISAMIDE
     Indication: Migraine
     Dosage: UNK
     Route: 048
  7. ETORICOXIB [Suspect]
     Active Substance: ETORICOXIB
     Indication: Migraine
     Dosage: UNK
     Route: 065
  8. NADOLOL [Suspect]
     Active Substance: NADOLOL
     Indication: Migraine
     Dosage: UNK
     Route: 048
  9. VALPROATE [Suspect]
     Active Substance: VALPROIC ACID
     Indication: Migraine
     Dosage: UNK
     Route: 048
  10. TOPIRAMATE [Suspect]
     Active Substance: TOPIRAMATE
     Indication: Migraine
     Dosage: UNK
     Route: 048
  11. TOPIRAMATE [Suspect]
     Active Substance: TOPIRAMATE
     Indication: Product used for unknown indication
     Dosage: UNK
     Route: 065
  12. FLUNARIZINE [Suspect]
     Active Substance: FLUNARIZINE
     Indication: Migraine
     Dosage: UNK
     Route: 048
  13. LEVOMEPROMAZINE [Suspect]
     Active Substance: LEVOMEPROMAZINE
     Indication: Migraine
     Dosage: UNK
     Route: 048
  14. LEVOMEPROMAZINE [Suspect]
     Active Substance: LEVOMEPROMAZINE
     Dosage: UNK
     Route: 065
  15. LAMOTRIGINE [Suspect]
     Active Substance: LAMOTRIGINE
     Indication: Migraine
     Dosage: UNK
     Route: 048
  16. BOTOX [Suspect]
     Active Substance: ONABOTULINUMTOXINA
     Indication: Product used for unknown indication
     Dosage: 300 DOSAGE FORM, 300 U, (PER SESSION)
     Route: 065
  17. BOTOX [Suspect]
     Active Substance: ONABOTULINUMTOXINA
     Indication: Migraine
     Dosage: UNK
     Route: 065
  18. ELETRIPTAN [Suspect]
     Active Substance: ELETRIPTAN
     Indication: Migraine
     Dosage: UNK
     Route: 065
  19. DILTIAZEM [Suspect]
     Active Substance: DILTIAZEM
     Indication: Migraine
     Dosage: UNK
     Route: 048
  20. LEVOTHROID [Concomitant]
     Active Substance: LEVOTHYROXINE SODIUM
     Indication: Hypothyroidism
     Dosage: UNK
     Route: 065

REACTIONS (6)
  - Somnolence [Unknown]
  - Drug eruption [Unknown]
  - Therapeutic product effect incomplete [Unknown]
  - Drug ineffective [Unknown]
  - Weight decreased [Unknown]
  - Withdrawal syndrome [Unknown]
